FAERS Safety Report 6394155-X (Version None)
Quarter: 2009Q4

REPORT INFORMATION
  Report Type: 
  Country: None (occurrence: None)
  Receive Date: 20091008
  Receipt Date: 20090928
  Transmission Date: 20100525
  Serious: Yes (Hospitalization)
  Sender: FDA-Public Use
  Company Number: DE-PFIZER INC-2009275288

PATIENT

DRUGS (3)
  1. LYRICA [Suspect]
     Dosage: UNK
     Route: 048
  2. GELONIDA [Concomitant]
     Dosage: UNK
  3. LAMICTAL [Concomitant]

REACTIONS (4)
  - DYSARTHRIA [None]
  - PANIC ATTACK [None]
  - TREMOR [None]
  - WITHDRAWAL SYNDROME [None]
